FAERS Safety Report 16094491 (Version 1)
Quarter: 2019Q2

REPORT INFORMATION
  Report Type: Spontaneous
  Country: US (occurrence: US)
  Receive Date: 20190319
  Receipt Date: 20190319
  Transmission Date: 20190711
  Serious: Yes (Other)
  Sender: FDA-Public Use
  Company Number: None

PATIENT
  Age: 72 Year
  Sex: Female
  Weight: 65.25 kg

DRUGS (12)
  1. LOSARTAN. [Concomitant]
     Active Substance: LOSARTAN
  2. VIT D [Concomitant]
     Active Substance: VITAMIN D NOS
  3. LOSARTAN POTASSIUM. [Suspect]
     Active Substance: LOSARTAN POTASSIUM
     Indication: HYPERTENSION
     Dosage: ?          QUANTITY:100 TABLET(S);?
     Route: 048
     Dates: start: 20180620, end: 20190315
  4. NEBULIZER [Concomitant]
     Active Substance: DEVICE
  5. HUMILOG [Concomitant]
  6. LEVOTHYROXINE. [Concomitant]
     Active Substance: LEVOTHYROXINE
  7. LANTUS [Concomitant]
     Active Substance: INSULIN GLARGINE
  8. ALBUTEROL. [Concomitant]
     Active Substance: ALBUTEROL
  9. SIMVASTATIN. [Concomitant]
     Active Substance: SIMVASTATIN
  10. BUDESONIDE. [Concomitant]
     Active Substance: BUDESONIDE
  11. ZYRTEK [Concomitant]
     Active Substance: CETIRIZINE HYDROCHLORIDE
  12. COQ10 [Concomitant]
     Active Substance: UBIDECARENONE

REACTIONS (1)
  - Renal impairment [None]

NARRATIVE: CASE EVENT DATE: 20190206
